FAERS Safety Report 17671832 (Version 3)
Quarter: 2020Q3

REPORT INFORMATION
  Report Type: Report from Study
  Country: CN (occurrence: CN)
  Receive Date: 20200415
  Receipt Date: 20200730
  Transmission Date: 20201102
  Serious: Yes (Hospitalization)
  Sender: FDA-Public Use
  Company Number: CN-TAKEDA-2019TUS049253

PATIENT
  Age: 33 Year
  Sex: Male
  Weight: 85 kg

DRUGS (13)
  1. VORTIOXETINE. [Suspect]
     Active Substance: VORTIOXETINE
     Dosage: UNK UNK, QD
     Route: 048
     Dates: start: 20200109, end: 20200119
  2. LORAZEPAM. [Concomitant]
     Active Substance: LORAZEPAM
     Indication: MAJOR DEPRESSION
     Dosage: 1 MILLIGRAM, QD
     Route: 048
     Dates: start: 201907, end: 20190813
  3. QUETIAPINE FUMARATE. [Concomitant]
     Active Substance: QUETIAPINE FUMARATE
     Indication: MAJOR DEPRESSION
     Dosage: 50 MILLIGRAM, QD
     Route: 048
     Dates: start: 20190902, end: 2019
  4. ADALAT [Concomitant]
     Active Substance: NIFEDIPINE
     Indication: HYPERTENSION
     Dosage: 30 MILLIGRAM, BID
     Route: 048
     Dates: start: 201907, end: 2019
  5. ATORVASTATIN CALCIUM. [Concomitant]
     Active Substance: ATORVASTATIN CALCIUM
     Indication: HYPERLIPIDAEMIA
     Dosage: 20 MILLIGRAM, QD
     Route: 048
     Dates: start: 20190823
  6. OLANZAPINE. [Concomitant]
     Active Substance: OLANZAPINE
     Indication: SLEEP DISORDER
     Dosage: 2.5 MILLIGRAM, QD
     Route: 048
     Dates: start: 2019
  7. PROZAC [Concomitant]
     Active Substance: FLUOXETINE HYDROCHLORIDE
     Indication: MAJOR DEPRESSION
     Dosage: 20 MILLIGRAM, QD
     Route: 048
  8. METOPROLOL TARTRATE. [Concomitant]
     Active Substance: METOPROLOL TARTRATE
     Indication: ARRHYTHMIA
     Dosage: 12.5 MILLIGRAM, QD
     Route: 048
     Dates: start: 20190824
  9. VORTIOXETINE. [Suspect]
     Active Substance: VORTIOXETINE
     Indication: MAJOR DEPRESSION
     Dosage: 10 MILLIGRAM, QD
     Route: 048
     Dates: start: 20190809, end: 20190811
  10. VORTIOXETINE. [Suspect]
     Active Substance: VORTIOXETINE
     Dosage: 15 MILLIGRAM, QD
     Route: 048
     Dates: start: 20190812, end: 20190917
  11. VORTIOXETINE. [Suspect]
     Active Substance: VORTIOXETINE
     Dosage: 20 MILLIGRAM, QD
     Route: 048
     Dates: start: 20190918, end: 20200108
  12. LORAZEPAM. [Concomitant]
     Active Substance: LORAZEPAM
     Indication: SLEEP DISORDER
     Dosage: 0.5 MILLIGRAM, BID
     Route: 048
     Dates: start: 20190814, end: 20190901
  13. LORAZEPAM. [Concomitant]
     Active Substance: LORAZEPAM
     Indication: AFFECTIVE DISORDER
     Dosage: 0.25 MILLIGRAM, BID
     Route: 048
     Dates: start: 20190902, end: 2019

REACTIONS (2)
  - Off label use [Recovered/Resolved]
  - Depression [Recovered/Resolved]

NARRATIVE: CASE EVENT DATE: 20190812
